FAERS Safety Report 24404236 (Version 1)
Quarter: 2024Q4

REPORT INFORMATION
  Report Type: Spontaneous
  Country: US (occurrence: None)
  Receive Date: 20241004
  Receipt Date: 20241004
  Transmission Date: 20250114
  Serious: No
  Sender: Public
  Company Number: None

PATIENT
  Age: 65 Year
  Sex: Male

DRUGS (2)
  1. AMOXICILLIN [Suspect]
     Active Substance: AMOXICILLIN
  2. CEPHALEXIN [Suspect]
     Active Substance: CEPHALEXIN

REACTIONS (1)
  - Rash [None]

NARRATIVE: CASE EVENT DATE: 20240528
